FAERS Safety Report 4741479-5 (Version None)
Quarter: 2005Q3

REPORT INFORMATION
  Report Type: 
  Country: None (occurrence: None)
  Receive Date: 20050808
  Receipt Date: 20050729
  Transmission Date: 20060218
  Serious: Yes (Hospitalization)
  Sender: FDA-Public Use
  Company Number: GBWYE871501AUG05

PATIENT
  Age: 78 Year
  Sex: Male

DRUGS (3)
  1. EFFEXOR XR [Suspect]
     Dosage: SEE IMAGE
     Route: 048
     Dates: start: 20040220, end: 20040201
  2. EFFEXOR XR [Suspect]
     Dosage: SEE IMAGE
     Route: 048
     Dates: start: 20040201
  3. LANSOPRAZOLE [Concomitant]

REACTIONS (2)
  - BLADDER CANCER [None]
  - MYOCARDIAL INFARCTION [None]
